FAERS Safety Report 5863376-4 (Version None)
Quarter: 2008Q3

REPORT INFORMATION
  Report Type: 
  Country: None (occurrence: None)
  Receive Date: 20080828
  Receipt Date: 20080820
  Transmission Date: 20090109
  Serious: Yes (Other)
  Sender: FDA-Public Use
  Company Number: PHHY2008DE18523

PATIENT
  Age: 6 Year
  Sex: Female

DRUGS (1)
  1. RITALIN LA [Suspect]
     Dosage: 20 MG DAILY
     Route: 048
     Dates: start: 20080818

REACTIONS (3)
  - APATHY [None]
  - DELUSION [None]
  - PSYCHOMOTOR HYPERACTIVITY [None]
